FAERS Safety Report 10936255 (Version 1)
Quarter: 2015Q1

REPORT INFORMATION
  Report Type: Spontaneous
  Country: US (occurrence: None)
  Receive Date: 20150320
  Receipt Date: 20150320
  Transmission Date: 20150721
  Serious: Yes (Other)
  Sender: FDA-Public Use
  Company Number: None

PATIENT
  Age: 25 Year
  Sex: Female
  Weight: 58.97 kg

DRUGS (1)
  1. LISINOPRIL. [Suspect]
     Active Substance: LISINOPRIL
     Indication: HYPERTENSION
     Dosage: 1 PILL
     Route: 048
     Dates: start: 20150314, end: 20150316

REACTIONS (6)
  - Vomiting [None]
  - Chills [None]
  - Nausea [None]
  - Hyperhidrosis [None]
  - Decreased appetite [None]
  - Abdominal pain [None]

NARRATIVE: CASE EVENT DATE: 20150316
